FAERS Safety Report 22388060 (Version 1)
Quarter: 2023Q2

REPORT INFORMATION
  Report Type: Spontaneous
  Country: US (occurrence: US)
  Receive Date: 20230531
  Receipt Date: 20230531
  Transmission Date: 20230722
  Serious: No
  Sender: FDA-Public Use
  Company Number: US-BAYER-2023A066202

PATIENT
  Age: 76 Year
  Sex: Female

DRUGS (1)
  1. ASTEPRO [Suspect]
     Active Substance: AZELASTINE HYDROCHLORIDE
     Indication: Asthma
     Dosage: UNK
     Route: 045
     Dates: start: 20230509, end: 20230509

REACTIONS (8)
  - Hypersensitivity [Recovering/Resolving]
  - Nasal discomfort [Recovering/Resolving]
  - Throat irritation [Recovering/Resolving]
  - Pharyngeal swelling [Recovering/Resolving]
  - Nausea [Recovering/Resolving]
  - Dizziness [Recovering/Resolving]
  - Headache [Recovering/Resolving]
  - Product use in unapproved indication [None]

NARRATIVE: CASE EVENT DATE: 20230509
